FAERS Safety Report 13298412 (Version 1)
Quarter: 2017Q1

REPORT INFORMATION
  Report Type: Spontaneous
  Country: US (occurrence: US)
  Receive Date: 20170306
  Receipt Date: 20170306
  Transmission Date: 20170428
  Serious: Yes (Other)
  Sender: FDA-Public Use
  Company Number: None

PATIENT
  Age: 60 Year
  Sex: Female
  Weight: 75.3 kg

DRUGS (6)
  1. VITAMIN D [Concomitant]
     Active Substance: CHOLECALCIFEROL
  2. ULTIMATE FLORA PROBIOTIC [Concomitant]
  3. LOVASTATIN 20MG TAB BLPT [Suspect]
     Active Substance: LOVASTATIN
     Indication: BLOOD TRIGLYCERIDES INCREASED
     Route: 048
     Dates: start: 20161121, end: 20170218
  4. COENZYME Q10 [Concomitant]
     Active Substance: UBIDECARENONE
  5. LOVASTATIN 20MG TAB BLPT [Suspect]
     Active Substance: LOVASTATIN
     Indication: BLOOD CHOLESTEROL INCREASED
     Route: 048
     Dates: start: 20161121, end: 20170218
  6. SERTRALINE [Concomitant]
     Active Substance: SERTRALINE HYDROCHLORIDE

REACTIONS (6)
  - Glossodynia [None]
  - Tongue blistering [None]
  - Hyperhidrosis [None]
  - Ear pruritus [None]
  - Dizziness [None]
  - Nausea [None]

NARRATIVE: CASE EVENT DATE: 20170218
